FAERS Safety Report 9689726 (Version 2)
Quarter: 2013Q4

REPORT INFORMATION
  Report Type: Spontaneous
  Country: DE (occurrence: DE)
  Receive Date: 20131115
  Receipt Date: 20131128
  Transmission Date: 20140711
  Serious: Yes (Other)
  Sender: FDA-Public Use
  Company Number: DE-JNJFOC-20131108143

PATIENT
  Age: 22 Year
  Sex: Female
  Weight: 62 kg

DRUGS (3)
  1. XARELTO [Suspect]
     Indication: MAY-THURNER SYNDROME
     Route: 065
     Dates: start: 20131007
  2. XARELTO [Suspect]
     Indication: EMBOLISM VENOUS
     Route: 065
     Dates: start: 20131007
  3. XARELTO [Suspect]
     Indication: PELVIC VENOUS THROMBOSIS
     Route: 065
     Dates: start: 20131007

REACTIONS (4)
  - Syncope [Recovered/Resolved]
  - Loss of consciousness [Recovered/Resolved]
  - Abdominal pain lower [Recovered/Resolved]
  - Contusion [Unknown]
